FAERS Safety Report 4582374-4 (Version None)
Quarter: 2005Q1

REPORT INFORMATION
  Report Type: 
  Country: None (occurrence: None)
  Receive Date: 20050119
  Receipt Date: 20040827
  Transmission Date: 20050727
  Serious: Yes (Death, Hospitalization)
  Sender: FDA-Public Use
  Company Number: US-JNJFOC-20031201838

PATIENT
  Age: 69 Year
  Sex: Female
  Weight: 60.3284 kg

DRUGS (3)
  1. DOXIL [Suspect]
     Indication: ENDOMETRIAL CANCER
     Dosage: 65 MG, INTRAVENOUS
     Route: 042
     Dates: start: 20030917, end: 20030917
  2. DEXAMETHASONE [Concomitant]
  3. CARDIZEM-CD (  ) DILTIAZEM [Concomitant]

REACTIONS (2)
  - ENDOMETRIAL CANCER [None]
  - INTESTINAL OBSTRUCTION [None]
